FAERS Safety Report 26189000 (Version 1)
Quarter: 2025Q4

REPORT INFORMATION
  Report Type: Spontaneous
  Country: CN (occurrence: CN)
  Receive Date: 20251223
  Receipt Date: 20251223
  Transmission Date: 20260118
  Serious: Yes (Other)
  Sender: USV PRIVATE LIMITED
  Company Number: CN-MLMSERVICE-20251203-PI737823-00336-4

PATIENT
  Age: 88 Year
  Sex: Male

DRUGS (3)
  1. ZOLEDRONIC ACID [Suspect]
     Active Substance: ZOLEDRONIC ACID
     Indication: Metastases to bone
     Dates: start: 202003, end: 202009
  2. ABIRATERONE [Concomitant]
     Active Substance: ABIRATERONE
     Indication: Prostate cancer stage IV
  3. ABIRATERONE [Concomitant]
     Active Substance: ABIRATERONE
     Indication: Metastases to bone

REACTIONS (2)
  - Chronic kidney disease [Unknown]
  - Disease progression [Unknown]

NARRATIVE: CASE EVENT DATE: 20200101
